FAERS Safety Report 14926160 (Version 1)
Quarter: 2018Q2

REPORT INFORMATION
  Report Type: Spontaneous
  Country: US (occurrence: US)
  Receive Date: 20180523
  Receipt Date: 20180523
  Transmission Date: 20180711
  Serious: No
  Sender: FDA-Public Use
  Company Number: US-JNJFOC-20180504653

PATIENT
  Sex: Female
  Weight: 56.25 kg

DRUGS (2)
  1. MENS ROGAINE EXTRA STRENGTH [Suspect]
     Active Substance: MINOXIDIL
     Route: 061
  2. MENS ROGAINE EXTRA STRENGTH [Suspect]
     Active Substance: MINOXIDIL
     Indication: ALOPECIA
     Dosage: USING SO FREQUENTLY THAT 3 MONTHS SUPPLY RUNS OUT OF IN A MATTER OF WEEKS
     Route: 061

REACTIONS (5)
  - Off label use [Unknown]
  - Product packaging issue [Unknown]
  - Alopecia [Unknown]
  - Product use issue [Unknown]
  - Overdose [Unknown]
